FAERS Safety Report 8309506-6 (Version None)
Quarter: 2012Q2

REPORT INFORMATION
  Report Type: 
  Country: None (occurrence: None)
  Receive Date: 20120425
  Receipt Date: 20120417
  Transmission Date: 20120825
  Serious: No
  Sender: FDA-Public Use
  Company Number: US-PFIZER INC-2012097266

PATIENT

DRUGS (15)
  1. AMLODIPINE BESILATE [Concomitant]
     Dosage: 5 MG, 1X/DAY
     Route: 048
     Dates: start: 20120322
  2. GABAPENTIN [Concomitant]
     Dosage: 100 MG, 2X/DAY
     Route: 048
     Dates: start: 20110303
  3. HYDROCHLOROTHIAZIDE [Concomitant]
     Dosage: 25 MG, 1X/DAY
     Route: 048
     Dates: start: 20110103
  4. LEVOTHYROXINE SODIUM [Concomitant]
     Dosage: 50 UG, 1X/DAY
     Route: 048
     Dates: start: 20110413
  5. MAXALT [Concomitant]
     Indication: HEADACHE
     Dosage: 10 MG,TAKE 1 TAB AT ONSET OF HEADACHE,MAY REPEAT EVERY 2 HOURS AS NEEDED,MAXIMUM 3 TABLETS IN 24 HRS
     Route: 048
     Dates: start: 20110303
  6. SIMVASTATIN [Concomitant]
     Dosage: 40 MG, 1X/DAY
     Route: 048
     Dates: start: 20110502
  7. NEURONTIN [Suspect]
     Dosage: 100 MG, 2X/DAY
     Route: 048
  8. FISH OIL [Concomitant]
     Dosage: UNK
  9. SPIRONOLACTONE [Concomitant]
     Dosage: 25 MG, 1X/DAY
     Route: 048
     Dates: start: 20110701
  10. SUMATRIPTAN SUCCINATE [Concomitant]
     Indication: MIGRAINE
     Dosage: 100 MG, TAKE 1 TABLET AT ONSET OF MIGRAINE HEADACHE. MAY REPEAT IN 2 HOURS IF NEEDED.
     Route: 048
     Dates: start: 20111116
  11. VITAMIN D [Concomitant]
     Dosage: 50000 UNIT , WEEKLY, TAKE 1 CAPSULE
     Route: 048
     Dates: start: 20120323
  12. ACIPHEX [Concomitant]
     Dosage: 20 MG, 1X/DAY
     Route: 048
     Dates: start: 20110303
  13. BUTALBITAL AND CAFFEINE AND PARACETAMOL [Concomitant]
     Indication: HEADACHE
     Dosage: 50-325-40 MG, TAKE 1 TABLET DAILY PRN
     Route: 048
     Dates: start: 20111010
  14. AMITRIPTYLINE HYDROCHLORIDE [Concomitant]
     Dosage: 50 MG, TAKE 1 TABLET AT BEDTIME
     Route: 048
     Dates: start: 20120110
  15. VITAMIN D [Concomitant]
     Dosage: 50000 UNIT, TAKE 1 CAPSULE WEEKLY FOR 8 WEEKS AND THEN ONE EVERY OTHER WEEK
     Route: 048
     Dates: start: 20110322

REACTIONS (2)
  - MIGRAINE [None]
  - HEADACHE [None]
